FAERS Safety Report 8889558 (Version 1)
Quarter: 2012Q4

REPORT INFORMATION
  Report Type: Spontaneous
  Country: US (occurrence: None)
  Receive Date: 20121105
  Receipt Date: 20121105
  Transmission Date: 20130627
  Serious: Yes (Other)
  Sender: FDA-Public Use
  Company Number: None

PATIENT
  Age: 82 Year
  Sex: Female
  Weight: 74.39 kg

DRUGS (1)
  1. GABAPENTIN [Suspect]
     Indication: NERVE PAIN
     Dosage: 300 mg 1 @ bedtime oral
     Route: 048
     Dates: start: 20121008

REACTIONS (4)
  - Hallucination [None]
  - Contusion [None]
  - Emotional distress [None]
  - Restlessness [None]
